FAERS Safety Report 12914926 (Version 3)
Quarter: 2017Q1

REPORT INFORMATION
  Report Type: Spontaneous
  Country: US (occurrence: US)
  Receive Date: 20161106
  Receipt Date: 20170106
  Transmission Date: 20170428
  Serious: No
  Sender: FDA-Public Use
  Company Number: US-ASTRAZENECA-2016SF15871

PATIENT
  Age: 84 Year
  Sex: Male
  Weight: 188 kg

DRUGS (5)
  1. OMEPRAZOLE. [Suspect]
     Active Substance: OMEPRAZOLE
     Dosage: UNKNOWN
     Route: 048
  2. OMEPRAZOLE. [Suspect]
     Active Substance: OMEPRAZOLE
     Route: 048
  3. NEXIUM 24HR [Suspect]
     Active Substance: ESOMEPRAZOLE MAGNESIUM
     Indication: DECREASED APPETITE
     Dosage: 20 MG; 1 DF, DAILY EVERY MORNING
     Route: 048
     Dates: start: 201406
  4. NEXIUM 24HR [Suspect]
     Active Substance: ESOMEPRAZOLE MAGNESIUM
     Indication: ABDOMINAL DISCOMFORT
     Dosage: 20 MG; 1 DF, DAILY EVERY MORNING
     Route: 048
     Dates: start: 201406
  5. NEXIUM 24HR [Suspect]
     Active Substance: ESOMEPRAZOLE MAGNESIUM
     Indication: WEIGHT DECREASED
     Dosage: 20 MG; 1 DF, DAILY EVERY MORNING
     Route: 048
     Dates: start: 201406

REACTIONS (3)
  - Weight decreased [Recovered/Resolved]
  - Abdominal discomfort [Unknown]
  - Product use issue [Recovered/Resolved]

NARRATIVE: CASE EVENT DATE: 2014
